FAERS Safety Report 11292199 (Version 2)
Quarter: 2015Q3

REPORT INFORMATION
  Report Type: Report from Study
  Country: CN (occurrence: CN)
  Receive Date: 20150722
  Receipt Date: 20150729
  Transmission Date: 20151125
  Serious: No
  Sender: FDA-Public Use
  Company Number: CN-ASTELLAS-2015US025982

PATIENT
  Age: 72 Year
  Sex: Male

DRUGS (2)
  1. MICAFUNGIN [Suspect]
     Active Substance: MICAFUNGIN
     Indication: FUNGAL INFECTION
     Route: 042
     Dates: start: 20140510, end: 20140510
  2. MICAFUNGIN [Suspect]
     Active Substance: MICAFUNGIN
     Route: 042
     Dates: start: 20140511, end: 20140513

REACTIONS (4)
  - Blood pressure decreased [Recovering/Resolving]
  - Pyrexia [Recovering/Resolving]
  - Blood creatinine increased [Recovering/Resolving]
  - Oxygen saturation decreased [Recovering/Resolving]

NARRATIVE: CASE EVENT DATE: 20140510
